FAERS Safety Report 13120564 (Version 2)
Quarter: 2017Q2

REPORT INFORMATION
  Report Type: Spontaneous
  Country: US (occurrence: US)
  Receive Date: 20170117
  Receipt Date: 20170620
  Transmission Date: 20170830
  Serious: Yes (Hospitalization, Other)
  Sender: FDA-Public Use
  Company Number: US-PFIZER INC-2016076162

PATIENT
  Age: 37 Year
  Sex: Female

DRUGS (14)
  1. BUTALBITAL APAP CAFFEINE [Concomitant]
     Dosage: 1 DF, AS NEEDED (BUTALBITAL: 50 MG, CAFFEINE: 40 MG, PARACETAMOL: 325 MG)
     Route: 048
     Dates: start: 20150205
  2. OXYCODONE AND ACETAMINOPHEN [Concomitant]
     Active Substance: ACETAMINOPHEN\OXYCODONE HYDROCHLORIDE
     Dosage: 1 DF, AS NEEDED  (TAKE 1 TABLET TWICE DAILY) (OXYCODONE HYDROCHLORIDE: 10 MG, PARACETAMOL: 325 MG)
     Route: 048
     Dates: start: 20140523
  3. PAROXETINE HCL [Concomitant]
     Active Substance: PAROXETINE HYDROCHLORIDE
     Dosage: 40 MG, DAILY (TAKE 1 TABLET BY MOUTH ONCE DAILY)
     Route: 048
     Dates: start: 20140808
  4. VITAMIN B12 [Concomitant]
     Active Substance: CYANOCOBALAMIN
     Dosage: 1000 UG, DAILY
     Route: 048
     Dates: start: 20150115
  5. CLONAZEPAM. [Concomitant]
     Active Substance: CLONAZEPAM
     Indication: ANXIETY
     Dosage: 0.5 MG, AS NEEDED (0.5 MG ORAL TABLET TAKE 1 TABLET BY MOUTH THREE TIMES)
     Route: 048
     Dates: start: 20140904
  6. FLOVENT HFA [Concomitant]
     Active Substance: FLUTICASONE PROPIONATE
     Dosage: UNK UNK, 2X/DAY (INHALE 2 PUFFS TWICE DAILY)
     Route: 055
     Dates: start: 20140523
  7. SAVELLA [Concomitant]
     Active Substance: MILNACIPRAN HYDROCHLORIDE
     Dosage: 25 MG, 2X/DAY
     Route: 048
     Dates: start: 20160119
  8. AMITRIPTYLINE HCL [Concomitant]
     Active Substance: AMITRIPTYLINE
     Dosage: 25 MG, 1X/DAY
     Route: 048
     Dates: start: 20150515
  9. CYCLOBENZAPRINE HCL [Concomitant]
     Active Substance: CYCLOBENZAPRINE HYDROCHLORIDE
     Dosage: 10 MG, AS NEEDED (TAKE 1 TABLET BY MOUTH TWICE A DAY)
     Route: 048
     Dates: start: 20150622
  10. LYRICA [Suspect]
     Active Substance: PREGABALIN
     Indication: FIBROMYALGIA
     Dosage: 75 MG, 2X/DAY
     Route: 048
     Dates: start: 20160113, end: 20160717
  11. PROPRANOLOL HCL [Concomitant]
     Active Substance: PROPRANOLOL HYDROCHLORIDE
     Dosage: 60 MG, DAILY
     Route: 048
     Dates: start: 20150406
  12. VENTOLIN HFA 108 [Concomitant]
     Dosage: UNK UNK, AS NEEDED (INHALATION AEROSOL SOLUTION INHALE TWO PUFFS EVERY 4 HOURS)
     Route: 055
     Dates: start: 20140904
  13. FERROUS SULFATE. [Concomitant]
     Active Substance: FERROUS SULFATE
     Dosage: 325 MG, DAILY (TABLET TAKE 1 TABLET DAILY)
     Route: 048
     Dates: start: 20150115
  14. RANITIDINE HCL [Concomitant]
     Active Substance: RANITIDINE HYDROCHLORIDE
     Dosage: 150 MG, DAILY
     Route: 048
     Dates: start: 20140904

REACTIONS (6)
  - Amnesia [Unknown]
  - Migraine [Unknown]
  - Cerebral haemorrhage [Unknown]
  - Concussion [Unknown]
  - Road traffic accident [Unknown]
  - Malaise [Unknown]
